FAERS Safety Report 11179942 (Version 1)
Quarter: 2015Q2

REPORT INFORMATION
  Report Type: Spontaneous
  Country: US (occurrence: US)
  Receive Date: 20150611
  Receipt Date: 20150611
  Transmission Date: 20150821
  Serious: No
  Sender: FDA-Public Use
  Company Number: US-TEVA-550521USA

PATIENT
  Age: 56 Year
  Sex: Male

DRUGS (1)
  1. CAPECITABINE. [Suspect]
     Active Substance: CAPECITABINE
     Indication: LIP AND/OR ORAL CAVITY CANCER
     Dosage: 3000 MILLIGRAM DAILY;
     Route: 048
     Dates: start: 20150224

REACTIONS (2)
  - Platelet count decreased [Unknown]
  - Product use issue [Unknown]

NARRATIVE: CASE EVENT DATE: 201503
